FAERS Safety Report 7475142-7 (Version None)
Quarter: 2011Q2

REPORT INFORMATION
  Report Type: 
  Country: None (occurrence: None)
  Receive Date: 20110509
  Receipt Date: 20110509
  Transmission Date: 20111010
  Serious: Yes (Life-Threatening)
  Sender: FDA-Public Use
  Company Number: None

PATIENT
  Age: 66 Year
  Sex: Male
  Weight: 95.2554 kg

DRUGS (8)
  1. SEROQUEL [Suspect]
     Indication: ANXIETY
     Dosage: 50 2X DAY
     Dates: start: 20100814, end: 20110101
  2. SEROQUEL [Suspect]
     Indication: TOURETTE'S DISORDER
     Dosage: 50 2X DAY
     Dates: start: 20100814, end: 20110101
  3. SEROQUEL [Suspect]
     Indication: SCHIZOPHRENIA
     Dosage: 50 2X DAY
     Dates: start: 20100814, end: 20110101
  4. SEROQUEL [Suspect]
     Indication: BIPOLAR DISORDER
     Dosage: 50 2X DAY
     Dates: start: 20100814, end: 20110101
  5. RISPERIDONE [Suspect]
     Indication: ANXIETY
     Dosage: 6MG 3X DAY
     Dates: start: 20101201, end: 20110507
  6. RISPERIDONE [Suspect]
     Indication: SCHIZOPHRENIA
     Dosage: 6MG 3X DAY
     Dates: start: 20101201, end: 20110507
  7. RISPERIDONE [Suspect]
     Indication: BIPOLAR DISORDER
     Dosage: 6MG 3X DAY
     Dates: start: 20101201, end: 20110507
  8. RISPERIDONE [Suspect]
     Indication: TOURETTE'S DISORDER
     Dosage: 6MG 3X DAY
     Dates: start: 20101201, end: 20110507

REACTIONS (18)
  - HYPERHIDROSIS [None]
  - ARTHROPATHY [None]
  - MUSCULOSKELETAL STIFFNESS [None]
  - DEHYDRATION [None]
  - DYSPHAGIA [None]
  - SOMNOLENCE [None]
  - WOUND [None]
  - JOINT SWELLING [None]
  - HAEMORRHAGE [None]
  - PURULENCE [None]
  - ARTHRALGIA [None]
  - TREMOR [None]
  - WHEELCHAIR USER [None]
  - COMMUNICATION DISORDER [None]
  - WEIGHT DECREASED [None]
  - GRUNTING [None]
  - WRIST DEFORMITY [None]
  - LACERATION [None]
